FAERS Safety Report 25615657 (Version 3)
Quarter: 2025Q3

REPORT INFORMATION
  Report Type: Spontaneous
  Country: US (occurrence: US)
  Receive Date: 20250729
  Receipt Date: 20250829
  Transmission Date: 20251020
  Serious: No
  Sender: Kenvue
  Company Number: US-KENVUE-20250705694

PATIENT
  Sex: Female

DRUGS (22)
  1. BENADRYL [Suspect]
     Active Substance: DIPHENHYDRAMINE HYDROCHLORIDE
     Indication: Injection site erythema
     Route: 065
  2. BENADRYL [Suspect]
     Active Substance: DIPHENHYDRAMINE HYDROCHLORIDE
     Indication: Injection site pruritus
  3. BENADRYL [Suspect]
     Active Substance: DIPHENHYDRAMINE HYDROCHLORIDE
     Indication: Pharyngeal swelling
  4. BENADRYL [Suspect]
     Active Substance: DIPHENHYDRAMINE HYDROCHLORIDE
     Indication: Paraesthesia oral
  5. BENADRYL [Suspect]
     Active Substance: DIPHENHYDRAMINE HYDROCHLORIDE
     Indication: Hypoaesthesia oral
  6. BENADRYL [Suspect]
     Active Substance: DIPHENHYDRAMINE HYDROCHLORIDE
     Indication: Tongue disorder
  7. BENADRYL [Suspect]
     Active Substance: DIPHENHYDRAMINE HYDROCHLORIDE
     Indication: Throat irritation
  8. PEPCID [Suspect]
     Active Substance: FAMOTIDINE
     Indication: Injection site erythema
     Route: 065
  9. PEPCID [Suspect]
     Active Substance: FAMOTIDINE
     Indication: Injection site pruritus
  10. PEPCID [Suspect]
     Active Substance: FAMOTIDINE
     Indication: Pharyngeal swelling
  11. PEPCID [Suspect]
     Active Substance: FAMOTIDINE
     Indication: Paraesthesia oral
  12. PEPCID [Suspect]
     Active Substance: FAMOTIDINE
     Indication: Hypoaesthesia oral
  13. PEPCID [Suspect]
     Active Substance: FAMOTIDINE
     Indication: Tongue disorder
  14. PEPCID [Suspect]
     Active Substance: FAMOTIDINE
     Indication: Throat irritation
  15. DECADRON [Concomitant]
     Active Substance: DEXAMETHASONE
     Indication: Injection site erythema
     Route: 065
  16. DECADRON [Concomitant]
     Active Substance: DEXAMETHASONE
     Indication: Injection site pruritus
  17. DECADRON [Concomitant]
     Active Substance: DEXAMETHASONE
     Indication: Pharyngeal swelling
  18. DECADRON [Concomitant]
     Active Substance: DEXAMETHASONE
     Indication: Paraesthesia oral
  19. DECADRON [Concomitant]
     Active Substance: DEXAMETHASONE
     Indication: Hypoaesthesia oral
  20. DECADRON [Concomitant]
     Active Substance: DEXAMETHASONE
     Indication: Tongue disorder
  21. DECADRON [Concomitant]
     Active Substance: DEXAMETHASONE
     Indication: Throat irritation
  22. OCREVUS ZUNOVO [Concomitant]
     Active Substance: HYALURONIDASE-OCSQ\OCRELIZUMAB
     Indication: Product used for unknown indication
     Route: 065

REACTIONS (1)
  - Off label use [Unknown]
